FAERS Safety Report 23662165 (Version 1)
Quarter: 2024Q1

REPORT INFORMATION
  Report Type: Spontaneous
  Country: EG (occurrence: None)
  Receive Date: 20240322
  Receipt Date: 20240322
  Transmission Date: 20240410
  Serious: Yes (Hospitalization, Other)
  Sender: FDA-Public Use
  Company Number: EG-Unichem Pharmaceuticals (USA) Inc-UCM202403-000271

PATIENT
  Age: 35 Year
  Sex: Male

DRUGS (1)
  1. TRAMADOL HCL [Suspect]
     Active Substance: TRAMADOL HYDROCHLORIDE
     Indication: Pain
     Route: 048

REACTIONS (3)
  - Hiccups [Recovered/Resolved]
  - Sleep disorder [Recovered/Resolved]
  - Nutritional condition abnormal [Recovered/Resolved]
